FAERS Safety Report 13167886 (Version 1)
Quarter: 2017Q1

REPORT INFORMATION
  Report Type: Spontaneous
  Country: ZA (occurrence: ZA)
  Receive Date: 20170131
  Receipt Date: 20170131
  Transmission Date: 20170428
  Serious: Yes (Hospitalization)
  Sender: FDA-Public Use
  Company Number: ZA-PFIZER INC-2017035673

PATIENT
  Age: 47 Year
  Sex: Female

DRUGS (3)
  1. PEPLOC /00550802/ [Concomitant]
     Indication: ULCER
     Dosage: 40 MG, UNK
     Route: 048
  2. STILPANE /01152401/ [Concomitant]
     Active Substance: ACETAMINOPHEN\CAFFEINE\CODEINE PHOSPHATE\MEPROBAMATE
     Indication: PAIN
     Route: 048
  3. LYRICA [Suspect]
     Active Substance: PREGABALIN
     Indication: NEURALGIA
     Dosage: 150 MG, UNK
     Route: 048

REACTIONS (1)
  - Gastric ulcer perforation [Unknown]
